FAERS Safety Report 17201312 (Version 1)
Quarter: 2019Q4

REPORT INFORMATION
  Report Type: Spontaneous
  Country: US (occurrence: BE)
  Receive Date: 20191226
  Receipt Date: 20191226
  Transmission Date: 20200122
  Serious: Yes (Other)
  Sender: FDA-Public Use
  Company Number: US-TEVA-2019-US-1159817

PATIENT
  Sex: Female

DRUGS (2)
  1. CARBOPLATIN TEVA [Suspect]
     Active Substance: CARBOPLATIN
     Indication: VULVAL CANCER
     Dosage: 9 TREATMENTS
     Route: 065
  2. PACLITAXEL TEVA [Suspect]
     Active Substance: PACLITAXEL
     Indication: VULVAL CANCER
     Dosage: 9 TREATMENTS
     Route: 065

REACTIONS (2)
  - Neoplasm progression [Unknown]
  - Pneumonia [Unknown]
